FAERS Safety Report 15257909 (Version 2)
Quarter: 2018Q3

REPORT INFORMATION
  Report Type: Spontaneous
  Country: RU (occurrence: RU)
  Receive Date: 20180808
  Receipt Date: 20180817
  Transmission Date: 20181010
  Serious: Yes (Other)
  Sender: FDA-Public Use
  Company Number: RU-ASTRAZENECA-2017SE99664

PATIENT
  Age: 54 Year
  Sex: Male
  Weight: 135 kg

DRUGS (16)
  1. BRILINTA [Suspect]
     Active Substance: TICAGRELOR
     Indication: STENT PLACEMENT
     Route: 048
     Dates: start: 2015
  2. FORXIGA [Suspect]
     Active Substance: DAPAGLIFLOZIN
     Indication: TYPE 2 DIABETES MELLITUS
     Route: 048
     Dates: start: 201707
  3. BRILINTA [Suspect]
     Active Substance: TICAGRELOR
     Indication: STENT PLACEMENT
     Route: 048
  4. BRILINTA [Suspect]
     Active Substance: TICAGRELOR
     Indication: STENT PLACEMENT
     Route: 048
  5. METFORMIN [Concomitant]
     Active Substance: METFORMIN HYDROCHLORIDE
  6. INSULIN [Concomitant]
     Active Substance: INSULIN NOS
  7. LOSARTAN. [Concomitant]
     Active Substance: LOSARTAN
  8. SPIRONOLACTONE. [Concomitant]
     Active Substance: SPIRONOLACTONE
  9. INSULIN [Concomitant]
     Active Substance: INSULIN NOS
  10. BRILINTA [Suspect]
     Active Substance: TICAGRELOR
     Indication: STENT PLACEMENT
     Route: 048
     Dates: start: 2015
  11. TORASEMIDE [Concomitant]
     Active Substance: TORSEMIDE
  12. BISOPROLOL [Concomitant]
     Active Substance: BISOPROLOL
  13. ACECARDOL [Concomitant]
     Active Substance: ASPIRIN
  14. TRIMETAZIDINE [Concomitant]
     Active Substance: TRIMETAZIDINE
  15. ATORVASTATIN [Concomitant]
     Active Substance: ATORVASTATIN
  16. SYDNOPHARM [Concomitant]

REACTIONS (3)
  - Shunt occlusion [Not Recovered/Not Resolved]
  - Angina pectoris [Unknown]
  - Intentional product misuse [Recovered/Resolved]
